FAERS Safety Report 25305664 (Version 1)
Quarter: 2025Q2

REPORT INFORMATION
  Report Type: Spontaneous
  Country: IN (occurrence: IN)
  Receive Date: 20250513
  Receipt Date: 20250513
  Transmission Date: 20250716
  Serious: Yes (Hospitalization, Other)
  Sender: RANBAXY
  Company Number: IN-SUN PHARMACEUTICAL INDUSTRIES LTD-2025R1-506039

PATIENT
  Age: 65 Year
  Sex: Male

DRUGS (3)
  1. LOPERAMIDE [Suspect]
     Active Substance: LOPERAMIDE
     Indication: Diarrhoea
     Route: 065
  2. LOPERAMIDE [Suspect]
     Active Substance: LOPERAMIDE
     Dosage: 70?90 TABLETS (140 MG?180 MG) PER DAY
     Route: 065
  3. LOPERAMIDE [Suspect]
     Active Substance: LOPERAMIDE
     Dosage: 180 UNK
     Route: 065

REACTIONS (8)
  - Syncope [Recovered/Resolved]
  - Drug dependence [Unknown]
  - Withdrawal syndrome [Unknown]
  - Restlessness [Unknown]
  - Irritability [Unknown]
  - Diarrhoea [Unknown]
  - Dizziness [Unknown]
  - Amnesia [Unknown]
